FAERS Safety Report 8880224 (Version 2)
Quarter: 2012Q4

REPORT INFORMATION
  Report Type: 
  Country: US (occurrence: US)
  Receive Date: 20121031
  Receipt Date: 20121119
  Transmission Date: 20130627
  Serious: Yes (Other)
  Sender: FDA-Public Use
  Company Number: US-ASTRAZENECA-2012SE80762

PATIENT
  Age: 63 Year
  Sex: Female

DRUGS (1)
  1. CRESTOR [Suspect]
     Route: 048

REACTIONS (5)
  - Myocardial infarction [Unknown]
  - Cerebrovascular accident [Unknown]
  - Spinal cord neoplasm [Unknown]
  - Meningitis [Unknown]
  - Malaise [Unknown]
